FAERS Safety Report 16493092 (Version 1)
Quarter: 2019Q2

REPORT INFORMATION
  Report Type: Spontaneous
  Country: US (occurrence: US)
  Receive Date: 20190628
  Receipt Date: 20190628
  Transmission Date: 20190711
  Serious: No
  Sender: FDA-Public Use
  Company Number: US-PERRIGO-18US011523

PATIENT
  Sex: Female

DRUGS (1)
  1. RANITIDINE HYDROCHLORIDE. [Suspect]
     Active Substance: RANITIDINE HYDROCHLORIDE
     Indication: WRONG PRODUCT ADMINISTERED
     Dosage: 600 MG WITHIN 24 HOURS
     Route: 048
     Dates: start: 20181012, end: 20181012

REACTIONS (1)
  - Wrong product administered [Recovered/Resolved]

NARRATIVE: CASE EVENT DATE: 20181012
